FAERS Safety Report 14965051 (Version 2)
Quarter: 2021Q4

REPORT INFORMATION
  Report Type: Spontaneous
  Country: NL (occurrence: NL)
  Receive Date: 20180601
  Receipt Date: 20211229
  Transmission Date: 20220303
  Serious: Yes (Hospitalization)
  Sender: FDA-Public Use
  Company Number: NL-MYLANLABS-2018M1036585

PATIENT
  Age: 66 Year
  Sex: Female

DRUGS (17)
  1. LITHIUM [Suspect]
     Active Substance: LITHIUM
     Indication: Bipolar disorder
     Dosage: 1200 MILLIGRAM, QD,DOSAGE STOPPED AND RE-STARTED AT 200MG/D
     Route: 065
  2. LITHIUM [Suspect]
     Active Substance: LITHIUM
     Dosage: 200 MILLIGRAM, QD ,DOSE INCREASED TO 400MG, WITHDRAWN ONE DAY LATER. RE-STARTED
     Route: 065
  3. LITHIUM [Suspect]
     Active Substance: LITHIUM
     Dosage: 400 MILLIGRAM, QD,  WITHDRAWN ONE DAY LATER. RE-STARTED, INCREASED TO 800MG/D
     Route: 065
  4. LITHIUM [Suspect]
     Active Substance: LITHIUM
     Dosage: 800 MILLIGRAM, QD, 1ST MAR-3RD MAR
     Route: 065
  5. VALPROIC ACID [Suspect]
     Active Substance: VALPROIC ACID
     Indication: Mania
     Dosage: ON DAY 1; INCREASED TO 600MG/D ON DAY 15
     Route: 065
  6. VALPROIC ACID [Suspect]
     Active Substance: VALPROIC ACID
     Indication: Hypomania
     Dosage: 600 MILLIGRAM, QD, INCREASED TO 1200MG/D ON DAY 21
     Route: 065
  7. VALPROIC ACID [Suspect]
     Active Substance: VALPROIC ACID
     Dosage: 1200 MILLIGRAM, QD,INCREASED TO 2500MG ON DAY 42
     Route: 065
  8. VALPROIC ACID [Suspect]
     Active Substance: VALPROIC ACID
     Dosage: 2500 MILLIGRAM, QD, CONTINUED UPTO DAY 77, WHEN IT WAS INCREASED TO 4000MG/D
     Route: 065
  9. VALPROIC ACID [Suspect]
     Active Substance: VALPROIC ACID
     Dosage: DECREASED TO 3000MG ON DAY 118
     Route: 065
  10. VALPROIC ACID [Suspect]
     Active Substance: VALPROIC ACID
     Dosage: CONTINUED UPTO DAY 126 AND DISCONTINUED
     Route: 065
  11. CITALOPRAM [Concomitant]
     Active Substance: CITALOPRAM HYDROBROMIDE
     Indication: Bipolar disorder
     Dosage: 10 MG; INCREASED TO 20MG ON DAY 197
     Route: 065
  12. CITALOPRAM [Concomitant]
     Active Substance: CITALOPRAM HYDROBROMIDE
     Dosage: 20 MG
     Route: 065
  13. PREDNISONE [Concomitant]
     Active Substance: PREDNISONE
     Indication: Proteinuria
     Dosage: 60 MG; REDUCED TO 30MG AND INCREASED BACK TO 60MG
     Route: 065
  14. PREDNISONE [Concomitant]
     Active Substance: PREDNISONE
     Dosage: 30 MG
     Route: 065
  15. CYCLOPHOSPHAMIDE [Concomitant]
     Active Substance: CYCLOPHOSPHAMIDE
     Indication: Proteinuria
     Dosage: 100 MG
     Route: 065
  16. FUROSEMIDE [Concomitant]
     Active Substance: FUROSEMIDE
     Indication: Proteinuria
     Dosage: 120 MILLIGRAM
     Route: 065
  17. LISINOPRIL [Concomitant]
     Active Substance: LISINOPRIL
     Indication: Proteinuria
     Dosage: 20 MILLIGRAM
     Route: 065

REACTIONS (15)
  - Toxicity to various agents [Unknown]
  - Encephalopathy [Unknown]
  - Nephrotic syndrome [Unknown]
  - Glomerulonephritis membranous [Unknown]
  - Proteinuria [Unknown]
  - Prescribed overdose [Recovered/Resolved]
  - Off label use [Recovered/Resolved]
  - Cognitive disorder [Recovered/Resolved]
  - Hypotension [Unknown]
  - Somnolence [Unknown]
  - Disorientation [Unknown]
  - Seizure [Unknown]
  - Delirium [Unknown]
  - Loss of personal independence in daily activities [Unknown]
  - Apathy [Unknown]
